FAERS Safety Report 4826700-7 (Version None)
Quarter: 2005Q4

REPORT INFORMATION
  Report Type: 
  Country: None (occurrence: None)
  Receive Date: 20051014
  Receipt Date: 20050804
  Transmission Date: 20060501
  Serious: No
  Sender: FDA-Public Use
  Company Number: 2005SP002248

PATIENT
  Age: 54 Year
  Sex: Female
  Weight: 53.0709 kg

DRUGS (3)
  1. LUNESTA [Suspect]
     Dosage: 2 MG;HS;ORAL
     Route: 048
     Dates: start: 20050701
  2. HYDROCHLOROTHIAZIDE [Concomitant]
  3. VITAMINS [Concomitant]

REACTIONS (1)
  - BLOOD PRESSURE INCREASED [None]
